FAERS Safety Report 4438919-8 (Version None)
Quarter: 2004Q3

REPORT INFORMATION
  Report Type: 
  Country: None (occurrence: None)
  Receive Date: 20040901
  Receipt Date: 20021101
  Transmission Date: 20050211
  Serious: Yes (Hospitalization, Disabling, Other)
  Sender: FDA-Public Use
  Company Number: PHFR2002GB03624

PATIENT
  Age: 33 Year
  Sex: Female

DRUGS (7)
  1. CLOZARIL [Suspect]
     Dosage: 400MG/DAY
     Route: 048
  2. CLOZARIL [Suspect]
     Dosage: 450 MG/DAY
     Route: 048
  3. PRAVASTATIN [Concomitant]
     Dosage: 20 MG/DAY
     Route: 048
  4. FENOFIBRATE [Concomitant]
     Dosage: 267 MG/DAY
     Route: 048
  5. IRBESARTAN [Concomitant]
     Dosage: 150 MG/DAY
     Route: 048
  6. NEURONTIN [Concomitant]
     Dosage: 20 MG/DAY
     Route: 048
  7. INSULIN [Concomitant]

REACTIONS (8)
  - ALANINE AMINOTRANSFERASE INCREASED [None]
  - BLOOD AMYLASE INCREASED [None]
  - BLOOD CREATININE DECREASED [None]
  - DIABETES MELLITUS [None]
  - HYPERTRIGLYCERIDAEMIA [None]
  - LIVER FUNCTION TEST ABNORMAL [None]
  - MEAN CELL VOLUME INCREASED [None]
  - PANCREATITIS [None]
